FAERS Safety Report 24682265 (Version 1)
Quarter: 2024Q4

REPORT INFORMATION
  Report Type: Spontaneous
  Country: BE (occurrence: BE)
  Receive Date: 20241130
  Receipt Date: 20241130
  Transmission Date: 20250114
  Serious: Yes (Other)
  Sender: ACCORD
  Company Number: BE-MLMSERVICE-20241115-PI257847-00101-1

PATIENT
  Age: 50 Year
  Sex: Male
  Weight: 87.5 kg

DRUGS (8)
  1. GEMCITABINE HYDROCHLORIDE [Suspect]
     Active Substance: GEMCITABINE HYDROCHLORIDE
     Indication: Adenocarcinoma
     Dosage: THREE-WEEKLY (GEMCITABINE 1,000 MG/M2 ON DAY 1 AND DAY 8 OF THE TREATMENT CYCLE)
     Dates: start: 2022, end: 2022
  2. CISPLATIN [Suspect]
     Active Substance: CISPLATIN
     Indication: Malignant neoplasm of unknown primary site
     Dosage: THREE-WEEKLY (CISPLATIN 20 MG/M2, ON DAY 1 AND DAY 8 OF THE TREATMENT CYCLE)
     Dates: start: 2022, end: 2022
  3. CISPLATIN [Suspect]
     Active Substance: CISPLATIN
     Indication: Metastases to kidney
     Dosage: THREE-WEEKLY (CISPLATIN 20 MG/M2, ON DAY 1 AND DAY 8 OF THE TREATMENT CYCLE)
     Dates: start: 2022, end: 2022
  4. CISPLATIN [Suspect]
     Active Substance: CISPLATIN
     Indication: Metastases to adrenals
     Dosage: THREE-WEEKLY (CISPLATIN 20 MG/M2, ON DAY 1 AND DAY 8 OF THE TREATMENT CYCLE)
     Dates: start: 2022, end: 2022
  5. CISPLATIN [Suspect]
     Active Substance: CISPLATIN
     Indication: Metastases to muscle
     Dosage: THREE-WEEKLY (CISPLATIN 20 MG/M2, ON DAY 1 AND DAY 8 OF THE TREATMENT CYCLE)
     Dates: start: 2022, end: 2022
  6. GEMCITABINE HYDROCHLORIDE [Suspect]
     Active Substance: GEMCITABINE HYDROCHLORIDE
     Indication: Metastases to kidney
     Dosage: THREE-WEEKLY (GEMCITABINE 1,000 MG/M2 ON DAY 1 AND DAY 8 OF THE TREATMENT CYCLE)
     Dates: start: 2022, end: 2022
  7. GEMCITABINE HYDROCHLORIDE [Suspect]
     Active Substance: GEMCITABINE HYDROCHLORIDE
     Indication: Metastases to adrenals
     Dosage: THREE-WEEKLY (GEMCITABINE 1,000 MG/M2 ON DAY 1 AND DAY 8 OF THE TREATMENT CYCLE)
     Dates: start: 2022, end: 2022
  8. GEMCITABINE HYDROCHLORIDE [Suspect]
     Active Substance: GEMCITABINE HYDROCHLORIDE
     Indication: Metastases to muscle
     Dosage: THREE-WEEKLY (GEMCITABINE 1,000 MG/M2 ON DAY 1 AND DAY 8 OF THE TREATMENT CYCLE)
     Dates: start: 2022, end: 2022

REACTIONS (3)
  - Axillary vein thrombosis [Unknown]
  - Subclavian vein thrombosis [Unknown]
  - Off label use [Unknown]

NARRATIVE: CASE EVENT DATE: 20220101
